FAERS Safety Report 26014647 (Version 1)
Quarter: 2025Q4

REPORT INFORMATION
  Report Type: Spontaneous
  Country: US (occurrence: US)
  Receive Date: 20251108
  Receipt Date: 20251108
  Transmission Date: 20260118
  Serious: Yes (Hospitalization, Other)
  Sender: MADRIGAL PHARMACEUTICALS
  Company Number: US-MADRIGAL PHARMACEUTICALS, INC-2025USREZ14218

PATIENT
  Age: 45 Year
  Sex: Male
  Weight: 55 kg

DRUGS (1)
  1. REZDIFFRA [Suspect]
     Active Substance: RESMETIROM
     Indication: Product used for unknown indication
     Dosage: 1 UNK, QD
     Route: 048
     Dates: start: 20250722

REACTIONS (1)
  - Pneumonia [Unknown]
